FAERS Safety Report 15408991 (Version 1)
Quarter: 2018Q3

REPORT INFORMATION
  Report Type: Spontaneous
  Country: CN (occurrence: CN)
  Receive Date: 20180920
  Receipt Date: 20180920
  Transmission Date: 20181010
  Serious: Yes (Other)
  Sender: FDA-Public Use
  Company Number: CN-BAYER-2018-165769

PATIENT
  Age: 44 Year
  Sex: Female

DRUGS (2)
  1. STIVARGA [Suspect]
     Active Substance: REGORAFENIB
     Indication: METASTASES TO LIVER
  2. STIVARGA [Suspect]
     Active Substance: REGORAFENIB
     Indication: COLORECTAL CANCER STAGE IV
     Dosage: 80 MG, QD
     Route: 048
     Dates: start: 20180818, end: 20180829

REACTIONS (8)
  - Rash generalised [Recovering/Resolving]
  - Rash pruritic [None]
  - Feeding disorder [None]
  - Ascites [None]
  - Off label use [None]
  - Hunger [None]
  - Diarrhoea [Recovered/Resolved]
  - Pyrexia [Recovered/Resolved]

NARRATIVE: CASE EVENT DATE: 2018
